FAERS Safety Report 23833474 (Version 1)
Quarter: 2024Q2

REPORT INFORMATION
  Report Type: Spontaneous
  Country: US (occurrence: US)
  Receive Date: 20240508
  Receipt Date: 20240508
  Transmission Date: 20240716
  Serious: No
  Sender: FDA-Public Use
  Company Number: US-009507513-2404USA006670

PATIENT
  Sex: Female
  Weight: 80 kg

DRUGS (1)
  1. KEYTRUDA [Suspect]
     Active Substance: PEMBROLIZUMAB
     Indication: Bladder cancer
     Dosage: 200MG EVERY 21 DAYS
     Route: 042
     Dates: start: 20230331

REACTIONS (3)
  - Blood creatine increased [Unknown]
  - Product dispensing issue [Unknown]
  - Product preparation issue [Unknown]
